FAERS Safety Report 13054076 (Version 1)
Quarter: 2016Q4

REPORT INFORMATION
  Report Type: Spontaneous
  Country: FR (occurrence: FR)
  Receive Date: 20161222
  Receipt Date: 20161222
  Transmission Date: 20170207
  Serious: Yes (Hospitalization)
  Sender: FDA-Public Use
  Company Number: FR-ASTRAZENECA-2016SF33387

PATIENT
  Age: 16637 Day
  Sex: Female

DRUGS (9)
  1. FORLAX [Concomitant]
     Active Substance: POLYETHYLENE GLYCOL 4000
  2. ABSTRAL [Concomitant]
     Active Substance: FENTANYL CITRATE
  3. PALBOCICLIB [Suspect]
     Active Substance: PALBOCICLIB
     Indication: BREAST CANCER METASTATIC
     Route: 048
     Dates: end: 20161125
  4. DUROGESIC [Concomitant]
     Active Substance: FENTANYL
  5. SERESTA [Concomitant]
     Active Substance: OXAZEPAM
  6. ZYLORIC [Concomitant]
     Active Substance: ALLOPURINOL
     Dosage: 100 MG PER DAY
  7. FASLODEX [Suspect]
     Active Substance: FULVESTRANT
     Indication: BREAST CANCER METASTATIC
     Dosage: 500 MG
     Route: 030
     Dates: start: 20161117, end: 20161125
  8. SEROPLEX [Concomitant]
     Active Substance: ESCITALOPRAM OXALATE
  9. IMODIUM [Concomitant]
     Active Substance: LOPERAMIDE HYDROCHLORIDE

REACTIONS (6)
  - Off label use [Recovered/Resolved]
  - Nausea [Recovered/Resolved]
  - Systemic inflammatory response syndrome [Unknown]
  - Hypercalcaemia [Recovering/Resolving]
  - Vomiting [Recovered/Resolved]
  - Acute kidney injury [Recovering/Resolving]

NARRATIVE: CASE EVENT DATE: 20161117
